FAERS Safety Report 10642183 (Version 2)
Quarter: 2014Q4

REPORT INFORMATION
  Report Type: Report from Study
  Country: BR (occurrence: BR)
  Receive Date: 20141210
  Receipt Date: 20141210
  Transmission Date: 20150529
  Serious: Yes (Hospitalization, Other)
  Sender: FDA-Public Use
  Company Number: BR-ROCHE-1325409

PATIENT
  Age: 73 Year
  Sex: Female
  Weight: 54 kg

DRUGS (18)
  1. ENALAPRIL MALEATE. [Concomitant]
     Active Substance: ENALAPRIL MALEATE
  2. VERAPAMIL [Concomitant]
     Active Substance: VERAPAMIL HYDROCHLORIDE
  3. DILACORON [Concomitant]
     Indication: CARDIAC DISORDER
  4. METHOTREXATE [Concomitant]
     Active Substance: METHOTREXATE
  5. ENDOFOLIN [Concomitant]
     Active Substance: FOLIC ACID
  6. ACLASTA [Concomitant]
     Active Substance: ZOLEDRONIC ACID
     Route: 065
  7. FLUX (FLUOXETINE) [Concomitant]
     Indication: CARDIAC DISORDER
  8. DILACORON [Concomitant]
     Route: 065
  9. DEPURA [Concomitant]
     Active Substance: CHOLECALCIFEROL
  10. TYLENOL [Concomitant]
     Active Substance: ACETAMINOPHEN
  11. ACTEMRA [Suspect]
     Active Substance: TOCILIZUMAB
     Indication: RHEUMATOID ARTHRITIS
     Dosage: MOST RECENT INFUSION: 01/APR/2014
     Route: 042
     Dates: start: 20131218
  12. SIFROL [Concomitant]
     Active Substance: PRAMIPEXOLE
     Indication: PARKINSON^S DISEASE
  13. DIOVAN HCT [Concomitant]
     Active Substance: HYDROCHLOROTHIAZIDE\VALSARTAN
  14. ENDOFOLIN [Concomitant]
     Active Substance: FOLIC ACID
  15. METHOTREXATE [Concomitant]
     Active Substance: METHOTREXATE
     Indication: RHEUMATOID ARTHRITIS
  16. METICORTEN [Concomitant]
     Active Substance: PREDNISONE
  17. ADDERA PLUS [Concomitant]
  18. MIOFLEX (BRAZIL) [Concomitant]

REACTIONS (14)
  - Pain [Recovering/Resolving]
  - Heart rate increased [Recovering/Resolving]
  - Dyspnoea [Not Recovered/Not Resolved]
  - Cold sweat [Recovering/Resolving]
  - Headache [Unknown]
  - Mitral valve disease [Not Recovered/Not Resolved]
  - Device dislocation [Unknown]
  - Musculoskeletal stiffness [Recovering/Resolving]
  - Gait disturbance [Not Recovered/Not Resolved]
  - Hypertension [Not Recovered/Not Resolved]
  - Joint stiffness [Recovering/Resolving]
  - Asthenia [Recovering/Resolving]
  - Abdominal pain [Recovering/Resolving]
  - Blood pressure abnormal [Not Recovered/Not Resolved]

NARRATIVE: CASE EVENT DATE: 20131220
